FAERS Safety Report 19488255 (Version 1)
Quarter: 2021Q3

REPORT INFORMATION
  Report Type: Spontaneous
  Country: US (occurrence: US)
  Receive Date: 20210702
  Receipt Date: 20210702
  Transmission Date: 20211014
  Serious: Yes (Other)
  Sender: FDA-Public Use
  Company Number: US-TAKEDA-2021TUS039775

PATIENT
  Age: 38 Year
  Sex: Female

DRUGS (11)
  1. NATPARA (PARATHYROID HORMONE) [Suspect]
     Active Substance: PARATHYROID HORMONE
     Indication: PRIMARY HYPERTHYROIDISM
     Dosage: 50 MICROGRAM
     Route: 065
  2. GABAPENTIN. [Concomitant]
     Active Substance: GABAPENTIN
     Dosage: 300 MILLIGRAM, QD
     Route: 065
  3. VITAMIN D5 [Concomitant]
     Dosage: 2000 INTERNATIONAL UNIT, QD
     Route: 065
  4. FLUVOXAMINE [Concomitant]
     Active Substance: FLUVOXAMINE
     Dosage: 50 MILLIGRAM, QD
     Route: 065
  5. CINACALCET. [Concomitant]
     Active Substance: CINACALCET
     Dosage: 30 MILLIGRAM, BID
     Route: 065
  6. NATPARA (PARATHYROID HORMONE) [Suspect]
     Active Substance: PARATHYROID HORMONE
     Indication: PRIMARY HYPERTHYROIDISM
     Dosage: 50 MICROGRAM
     Route: 065
  7. TOPIRAMATE. [Concomitant]
     Active Substance: TOPIRAMATE
     Dosage: 75 MILLIGRAM, QD
     Route: 065
  8. CALCITROL [Concomitant]
  9. NATPARA (PARATHYROID HORMONE) [Suspect]
     Active Substance: PARATHYROID HORMONE
     Indication: PRIMARY HYPERTHYROIDISM
     Dosage: 50 MICROGRAM
     Route: 065
  10. AMLODIPINE [Concomitant]
     Active Substance: AMLODIPINE BESYLATE
     Dosage: 5 MILLIGRAM, QD
     Route: 065
  11. CLONAZEPAM. [Concomitant]
     Active Substance: CLONAZEPAM
     Dosage: 0.5 MILLIGRAM, PRN
     Route: 065

REACTIONS (2)
  - Calciphylaxis [Not Recovered/Not Resolved]
  - Hyperparathyroidism [Unknown]
